FAERS Safety Report 6384312-0 (Version None)
Quarter: 2009Q3

REPORT INFORMATION
  Report Type: 
  Country: None (occurrence: None)
  Receive Date: 20090929
  Receipt Date: 20090916
  Transmission Date: 20100115
  Serious: Yes (Other)
  Sender: FDA-Public Use
  Company Number: 2009AL006091

PATIENT
  Age: 45 Year
  Sex: Male

DRUGS (1)
  1. EPIRUBICIN HCL [Suspect]
     Indication: DRUG USE FOR UNKNOWN INDICATION
     Dosage: 750 MG;X1;
     Dates: start: 20090822, end: 20090825

REACTIONS (3)
  - DYSPNOEA [None]
  - IRRITABILITY [None]
  - MUSCLE SPASMS [None]
